FAERS Safety Report 15056892 (Version 1)
Quarter: 2018Q2

REPORT INFORMATION
  Report Type: Spontaneous
  Country: US (occurrence: US)
  Receive Date: 20180604
  Receipt Date: 20180604
  Transmission Date: 20180711
  Serious: Yes (Hospitalization)
  Sender: FDA-Public Use
  Company Number: None

PATIENT
  Age: 11 Year
  Sex: Male
  Weight: 34.3 kg

DRUGS (1)
  1. KYMRIAH [Suspect]
     Active Substance: TISAGENLECLEUCEL
     Indication: B-CELL SMALL LYMPHOCYTIC LYMPHOMA
     Dosage: 2X10^6 CAR + VIABLE T-CELLS/KG, ONCE, IV
     Route: 042
     Dates: start: 20180501

REACTIONS (3)
  - Febrile neutropenia [None]
  - Neurotoxicity [None]
  - Cytokine release syndrome [None]

NARRATIVE: CASE EVENT DATE: 20180506
